FAERS Safety Report 25844005 (Version 5)
Quarter: 2025Q4

REPORT INFORMATION
  Report Type: Report from Study
  Country: CA (occurrence: None)
  Receive Date: 20250925
  Receipt Date: 20251227
  Transmission Date: 20260118
  Serious: Yes (Other)
  Sender: UCB
  Company Number: CA-UCBSA-2025027458

PATIENT

DRUGS (6)
  1. BIMEKIZUMAB [Suspect]
     Active Substance: BIMEKIZUMAB
     Indication: Psoriasis
     Dosage: 320 MILLIGRAM, EV 8 WEEKS
  2. BIMEKIZUMAB [Suspect]
     Active Substance: BIMEKIZUMAB
     Indication: Hidradenitis
     Dosage: 320 MILLIGRAM, EV 4 WEEKS
  3. BIMEKIZUMAB [Suspect]
     Active Substance: BIMEKIZUMAB
     Dosage: 320 MILLIGRAM, EV 8 WEEKS
  4. BIMEKIZUMAB [Suspect]
     Active Substance: BIMEKIZUMAB
     Dosage: 320 MILLIGRAM, EV 8 WEEKS
  5. BIMEKIZUMAB [Suspect]
     Active Substance: BIMEKIZUMAB
     Dosage: 320 MILLIGRAM, EV 4 WEEKS
  6. PANTOPRAZOLE [Concomitant]
     Active Substance: PANTOPRAZOLE
     Indication: Product used for unknown indication

REACTIONS (17)
  - Genital abscess [Not Recovered/Not Resolved]
  - Surgery [Not Recovered/Not Resolved]
  - Abscess drainage [Not Recovered/Not Resolved]
  - Postoperative wound complication [Unknown]
  - Fungal infection [Not Recovered/Not Resolved]
  - Bacterial infection [Unknown]
  - Muscle contracture [Unknown]
  - Psoriasis [Not Recovered/Not Resolved]
  - General physical health deterioration [Unknown]
  - Acne [Unknown]
  - Hidradenitis [Not Recovered/Not Resolved]
  - Illness [Not Recovered/Not Resolved]
  - Off label use [Unknown]
  - Intentional dose omission [Unknown]
  - Product availability issue [Unknown]
  - Product use in unapproved indication [Not Recovered/Not Resolved]
  - Therapy cessation [Unknown]
